FAERS Safety Report 6595121-1 (Version None)
Quarter: 2010Q1

REPORT INFORMATION
  Report Type: 
  Country: None (occurrence: None)
  Receive Date: 20100212
  Receipt Date: 20091126
  Transmission Date: 20100710
  Serious: Yes (Death, Hospitalization, Other)
  Sender: FDA-Public Use
  Company Number: 8020244

PATIENT
  Sex: Female
  Weight: 69.3 kg

DRUGS (9)
  1. CERTOLIZUMAB PEGOL (CDP870) [Suspect]
     Indication: CROHN'S DISEASE
     Dosage: SEE IMAGE
     Route: 058
     Dates: start: 20040604, end: 20040702
  2. CERTOLIZUMAB PEGOL (CDP870) [Suspect]
     Indication: CROHN'S DISEASE
     Dosage: SEE IMAGE
     Route: 058
     Dates: start: 20040730, end: 20040827
  3. CERTOLIZUMAB PEGOL (CDP870) [Suspect]
     Indication: CROHN'S DISEASE
     Dosage: SEE IMAGE
     Route: 058
     Dates: start: 20040924, end: 20041022
  4. CERTOLIZUMAB PEGOL (CDP870) [Suspect]
     Indication: CROHN'S DISEASE
     Dosage: SEE IMAGE
     Route: 058
     Dates: start: 20041119, end: 20061120
  5. ASACOL [Concomitant]
  6. PARACETAMOL [Concomitant]
  7. AROPAX [Concomitant]
  8. NEO-CYTAMEN [Concomitant]
  9. LEMNIS HC [Concomitant]

REACTIONS (33)
  - BACTERIAL TEST POSITIVE [None]
  - BLOOD POTASSIUM DECREASED [None]
  - BREAST ABSCESS [None]
  - BREAST CANCER [None]
  - BREAST CANCER METASTATIC [None]
  - COLITIS [None]
  - DELIRIUM [None]
  - DENTAL CARIES [None]
  - DUODENAL STENOSIS [None]
  - ECZEMA [None]
  - HEADACHE [None]
  - HYDRONEPHROSIS [None]
  - ILEUS [None]
  - LYMPHADENOPATHY [None]
  - MASTITIS [None]
  - METASTASES TO BONE [None]
  - METASTASES TO LUNG [None]
  - METASTASES TO NERVOUS SYSTEM [None]
  - METASTASES TO PERITONEUM [None]
  - METASTASES TO SPLEEN [None]
  - METASTASIS [None]
  - OESTROGEN RECEPTOR ASSAY POSITIVE [None]
  - PATHOLOGICAL FRACTURE [None]
  - PERICARDIAL EFFUSION [None]
  - PLEURAL EFFUSION [None]
  - PROGESTERONE RECEPTOR ASSAY POSITIVE [None]
  - RENAL FAILURE ACUTE [None]
  - SEROMA [None]
  - SPINAL FRACTURE [None]
  - TOOTH EXTRACTION [None]
  - URETERIC STENOSIS [None]
  - URINARY TRACT INFECTION STAPHYLOCOCCAL [None]
  - VOMITING [None]
